FAERS Safety Report 5332182-1 (Version None)
Quarter: 2007Q2

REPORT INFORMATION
  Report Type: 
  Country: None (occurrence: None)
  Receive Date: 20070521
  Receipt Date: 20070514
  Transmission Date: 20071010
  Serious: Yes (Hospitalization)
  Sender: FDA-Public Use
  Company Number: WAES 0705USA00089

PATIENT
  Age: 48 Year
  Sex: Female

DRUGS (4)
  1. SINGULAIR [Suspect]
     Indication: ASTHMA
     Dosage: 7 MG/DAILY
     Route: 042
     Dates: start: 20070425, end: 20070425
  2. SUMILU [Concomitant]
  3. THERAPY UNSPECIFIED [Concomitant]
  4. SODIUM CHLORIDE [Concomitant]

REACTIONS (14)
  - BACTERIAL INFECTION [None]
  - C-REACTIVE PROTEIN INCREASED [None]
  - CHEST PAIN [None]
  - CHILLS [None]
  - HEART RATE INCREASED [None]
  - LYMPH NODE PAIN [None]
  - MALAISE [None]
  - PRODUCTIVE COUGH [None]
  - PYREXIA [None]
  - RESPIRATION ABNORMAL [None]
  - SPUTUM ABNORMAL [None]
  - SPUTUM PURULENT [None]
  - WHEEZING [None]
  - WHITE BLOOD CELL COUNT INCREASED [None]
